FAERS Safety Report 13120952 (Version 1)
Quarter: 2017Q1

REPORT INFORMATION
  Report Type: Spontaneous
  Country: US (occurrence: US)
  Receive Date: 20170117
  Receipt Date: 20170117
  Transmission Date: 20170428
  Serious: No
  Sender: FDA-Public Use
  Company Number: US-ASTRAZENECA-2017SE03454

PATIENT
  Sex: Male

DRUGS (1)
  1. BRILINTA [Suspect]
     Active Substance: TICAGRELOR
     Dosage: 90.0MG UNKNOWN
     Route: 048

REACTIONS (5)
  - Intentional product misuse [Unknown]
  - Haemorrhage [Unknown]
  - Dyspnoea [Unknown]
  - Contusion [Unknown]
  - Wrong technique in product usage process [Unknown]
